FAERS Safety Report 9985512 (Version 2)
Quarter: 2014Q1

REPORT INFORMATION
  Report Type: Spontaneous
  Country: US (occurrence: US)
  Receive Date: 20140307
  Receipt Date: 20140307
  Transmission Date: 20141002
  Serious: Yes (Hospitalization, Disabling, Other)
  Sender: FDA-Public Use
  Company Number: US-009507513-1101USA01771

PATIENT
  Sex: Female
  Weight: 72.58 kg

DRUGS (7)
  1. FOSAMAX [Suspect]
  2. FOSAMAX [Suspect]
     Indication: OSTEOPENIA
     Dosage: 70 MG, QW
     Route: 048
     Dates: start: 20041118, end: 20081110
  3. ALENDRONATE SODIUM [Suspect]
  4. CALCIUM (UNSPECIFIED) [Concomitant]
     Dates: start: 1999
  5. VITAMIN D (UNSPECIFIED) [Concomitant]
     Dates: start: 1999
  6. MK-9278 [Concomitant]
  7. SYNTHROID [Concomitant]
     Indication: HYPOTHYROIDISM
     Dates: start: 1974

REACTIONS (26)
  - Femur fracture [Not Recovered/Not Resolved]
  - Osteoporosis [Not Recovered/Not Resolved]
  - Low turnover osteopathy [Recovered/Resolved]
  - Burns second degree [Unknown]
  - Cartilage injury [Unknown]
  - Femur fracture [Unknown]
  - Osteoarthritis [Unknown]
  - Fall [Unknown]
  - Foot fracture [Not Recovered/Not Resolved]
  - Hypercholesterolaemia [Not Recovered/Not Resolved]
  - Hyperlipidaemia [Not Recovered/Not Resolved]
  - Pneumonia [Unknown]
  - Bronchitis [Unknown]
  - Senile osteoporosis [Not Recovered/Not Resolved]
  - Epicondylitis [Not Recovered/Not Resolved]
  - Joint crepitation [Not Recovered/Not Resolved]
  - Polyp [Unknown]
  - Uterine leiomyoma [Unknown]
  - Cataract nuclear [Unknown]
  - Rhinitis allergic [Unknown]
  - Breast mass [Unknown]
  - Hypercalciuria [Unknown]
  - Pain in extremity [Unknown]
  - Back pain [Unknown]
  - Constipation [Unknown]
  - Arthralgia [Unknown]
